FAERS Safety Report 9506057 (Version 1)
Quarter: 2013Q1

REPORT INFORMATION
  Report Type: Spontaneous
  Country: US (occurrence: None)
  Receive Date: 20130305
  Receipt Date: 20130305
  Transmission Date: 20140127
  Serious: Yes (Hospitalization)
  Sender: FDA-Public Use
  Company Number: 163-21880-12052476

PATIENT
  Sex: Female
  Weight: 66.68 kg

DRUGS (29)
  1. REVLIMID (LENALIDOMIDE) (25 MILLIGRAM, CAPSULES) [Suspect]
     Indication: PLASMA CELL MYELOMA
     Dosage: 25 MG, 21 IN 21 D, PO
     Dates: start: 20070619, end: 20120516
  2. COUMADIN (WARFARIN SODIUM) [Concomitant]
  3. GLIPIZIDE (GLIPIZIDE) [Concomitant]
  4. METFORMIN HCL (METFORMIN HYDROCHLORIDE) [Concomitant]
  5. PREDNISONE (PREDNISONE) [Concomitant]
  6. TORSEMIDE [Concomitant]
  7. TRIAMTERENE AND HYDROCHLOROTHIAZIDE (DYAZIDE) [Concomitant]
  8. TYLENOL (PARACETAMOL) [Concomitant]
  9. OXYGEN (OXYGEN) [Concomitant]
  10. GLYBURIDE (GLIBENCLAMIDE) [Concomitant]
  11. ADVAIR INHALER (SERETIDE MITE) [Concomitant]
  12. LOVASTATIN (LOVASTATIN) [Concomitant]
  13. POTASSIUM (POTASSIUM) [Concomitant]
  14. SPIRIVA (TIOTROPIUM BROMIDE) [Concomitant]
  15. WHOLE BLOOD [Concomitant]
  16. IRON (IRON) [Concomitant]
  17. B12 (VITAMIN B-12) [Concomitant]
  18. VANCOMYCIN (VANCOMYCIN) [Concomitant]
  19. DOXYCYCLINE (DOXYCYCLINE) [Concomitant]
  20. METRONIDAZOLE (METRONIDAZOLE) [Concomitant]
  21. MULTIVITAMIN (MULTIVITAMINS) [Concomitant]
  22. POTASSIUM CHLORIDE (POTASSIUM CHLORIDE) [Concomitant]
  23. ALBUTEROL (SALBUTAMOL) [Concomitant]
  24. DECADRON (DEXAMETHASONE) [Concomitant]
  25. LEVAQUIN (LEVOFLOXACIN) [Concomitant]
  26. MACRODANTIN [Concomitant]
  27. NYSTATIN (NYSTATIN) [Concomitant]
  28. TRIAMTERENE-HYDROCHLOROTHIAZIDE (DYAZIDE) [Concomitant]
  29. ULTRAM (TRAMADOL HYDROCHLORIDE) [Concomitant]

REACTIONS (1)
  - Cellulitis staphylococcal [None]
